FAERS Safety Report 13949984 (Version 1)
Quarter: 2017Q3

REPORT INFORMATION
  Report Type: Spontaneous
  Country: US (occurrence: US)
  Receive Date: 20170908
  Receipt Date: 20170908
  Transmission Date: 20171128
  Serious: Yes (Other)
  Sender: FDA-Public Use
  Company Number: US-ROCHE-1141639

PATIENT
  Sex: Male

DRUGS (4)
  1. PROCRIT [Concomitant]
     Active Substance: ERYTHROPOIETIN
     Route: 065
  2. GAMMA GLOBULIN [Concomitant]
     Active Substance: IMMUNE GLOBULIN NOS
     Route: 065
  3. EPOGEN [Concomitant]
     Active Substance: ERYTHROPOIETIN
     Dosage: DOSE: 60000 UNITS
     Route: 065
  4. RITUXAN [Suspect]
     Active Substance: RITUXIMAB
     Indication: CHRONIC LYMPHOCYTIC LEUKAEMIA
     Route: 065

REACTIONS (6)
  - Thrombocytopenia [Unknown]
  - Dyspnoea [Recovered/Resolved]
  - Hypogammaglobulinaemia [Unknown]
  - Disease progression [Unknown]
  - Anaemia [Unknown]
  - Pancytopenia [Unknown]
